FAERS Safety Report 10166523 (Version 1)
Quarter: 2014Q2

REPORT INFORMATION
  Report Type: Spontaneous
  Country: US (occurrence: None)
  Receive Date: 20140509
  Receipt Date: 20140509
  Transmission Date: 20141212
  Serious: No
  Sender: FDA-Public Use
  Company Number: None

PATIENT
  Sex: Female
  Weight: 67.13 kg

DRUGS (1)
  1. WARFARIN SODIUM [Suspect]
     Indication: CARDIAC FAILURE CONGESTIVE
     Dosage: 6 MG PILL DAILY ORAL
     Route: 048
     Dates: start: 201311

REACTIONS (6)
  - Haemorrhage [None]
  - Contusion [None]
  - Dizziness [None]
  - Loss of consciousness [None]
  - Dyspnoea [None]
  - Pruritus [None]
